FAERS Safety Report 5582228-0 (Version None)
Quarter: 2007Q4

REPORT INFORMATION
  Report Type: 
  Country: None (occurrence: None)
  Receive Date: 20071130
  Receipt Date: 20070731
  Transmission Date: 20080405
  Serious: No
  Sender: FDA-Public Use
  Company Number: US200705007405

PATIENT
  Age: 71 Year
  Sex: Female

DRUGS (25)
  1. BYETTA [Suspect]
     Indication: TYPE 2 DIABETES MELLITUS
     Dosage: 5 UG, 2/D, SUBCUTANEOUS ; 10 UG, 2/D, SUBCUTANEOUS
     Route: 058
     Dates: start: 20070503, end: 20070524
  2. BYETTA [Suspect]
     Indication: TYPE 2 DIABETES MELLITUS
     Dosage: 5 UG, 2/D, SUBCUTANEOUS ; 10 UG, 2/D, SUBCUTANEOUS
     Route: 058
     Dates: start: 20070524, end: 20070724
  3. GLIPIZIDE (GLIPIZDE) [Concomitant]
  4. ACTOS /USA/ (PIOGLITAZONE HYDROCHLORIDE) [Concomitant]
  5. WARFARIN SODIUM [Concomitant]
  6. ACTONEL [Concomitant]
  7. ADVAIR DISKUS 100/50 [Concomitant]
  8. CALTRATE PLUS (CALCIUM, COLECALCIFEROL, COPPER, MAGNESIUM, MANGANESE, [Concomitant]
  9. COMBIVENT (IPRATROPIUM BROMIDE, SALBUTAMOL) [Concomitant]
  10. CYMBALTA [Concomitant]
  11. FUROSEMIDE [Concomitant]
  12. METFORMIN HCL [Concomitant]
  13. KLOR-CON [Concomitant]
  14. NORVASC [Concomitant]
  15. PROVIGIL [Concomitant]
  16. SPIRIVA [Concomitant]
  17. SYNTHROID [Concomitant]
  18. ASCORBIC ACID [Concomitant]
  19. ATROVENT [Concomitant]
  20. ALBUTEROL [Concomitant]
  21. MIRAPEX [Concomitant]
  22. PRILOSEC [Concomitant]
  23. TEMAZEPAM [Concomitant]
  24. VYTORIN [Concomitant]
  25. CARBIDOPA W/LEVODOPA (CARBIDOPA, LEVODOPA) [Concomitant]

REACTIONS (4)
  - BLOOD GLUCOSE DECREASED [None]
  - BLOOD GLUCOSE INCREASED [None]
  - DECREASED APPETITE [None]
  - URINARY TRACT INFECTION [None]
